FAERS Safety Report 12010720 (Version 1)
Quarter: 2016Q1

REPORT INFORMATION
  Report Type: Spontaneous
  Country: IQ (occurrence: IQ)
  Receive Date: 20160205
  Receipt Date: 20160205
  Transmission Date: 20160526
  Serious: Yes (Other)
  Sender: FDA-Public Use
  Company Number: IQ-009507513-1602IRQ002354

PATIENT

DRUGS (1)
  1. INTEGRILIN [Suspect]
     Active Substance: EPTIFIBATIDE
     Dosage: UNK

REACTIONS (5)
  - Haematuria [Unknown]
  - Gingival bleeding [Unknown]
  - Coronary revascularisation [Unknown]
  - Cardiac operation [Unknown]
  - Upper gastrointestinal haemorrhage [Unknown]
